FAERS Safety Report 6553247-2 (Version None)
Quarter: 2010Q1

REPORT INFORMATION
  Report Type: 
  Country: None (occurrence: None)
  Receive Date: 20100127
  Receipt Date: 20090601
  Transmission Date: 20100710
  Serious: No
  Sender: FDA-Public Use
  Company Number: A0781040A

PATIENT
  Age: 57 Year
  Sex: Female

DRUGS (5)
  1. IMITREX [Suspect]
     Indication: MIGRAINE
     Dosage: 6MG AS REQUIRED
     Route: 058
     Dates: start: 19980101
  2. SUMATRIPTAN AUTOINJECTOR [Suspect]
  3. NEXIUM [Concomitant]
  4. LIPITOR [Concomitant]
  5. EXCEDRIN (MIGRAINE) [Concomitant]

REACTIONS (2)
  - DRUG INEFFECTIVE [None]
  - PRODUCT QUALITY ISSUE [None]
